FAERS Safety Report 22032372 (Version 7)
Quarter: 2023Q4

REPORT INFORMATION
  Report Type: Report from Study
  Country: AR (occurrence: AR)
  Receive Date: 20230224
  Receipt Date: 20231120
  Transmission Date: 20240110
  Serious: Yes (Hospitalization, Other)
  Sender: FDA-Public Use
  Company Number: AR-002147023-NVSC2022AR233834

PATIENT
  Age: 60 Year
  Sex: Female

DRUGS (2)
  1. KISQALI [Suspect]
     Active Substance: RIBOCICLIB
     Indication: Breast cancer metastatic
     Dosage: 600 MG, QD (THROUGH THE MOUTH)
     Route: 048
     Dates: start: 20221011
  2. TRAMADOL [Concomitant]
     Active Substance: TRAMADOL\TRAMADOL HYDROCHLORIDE
     Indication: Product used for unknown indication
     Dosage: UNK, UNKNOWN
     Route: 065

REACTIONS (33)
  - Ear infection [Unknown]
  - Ear pain [Unknown]
  - Tooth infection [Unknown]
  - Haemorrhage [Unknown]
  - Abdominal pain upper [Unknown]
  - Osteomyelitis [Unknown]
  - Breast swelling [Unknown]
  - Pain [Unknown]
  - Back pain [Unknown]
  - Malaise [Unknown]
  - Chills [Unknown]
  - Gingivitis [Unknown]
  - Gallbladder disorder [Unknown]
  - Tremor [Unknown]
  - Migraine [Unknown]
  - Somnolence [Unknown]
  - Stress [Unknown]
  - Synovial cyst [Unknown]
  - Pyrexia [Unknown]
  - Diarrhoea [Unknown]
  - Alopecia [Unknown]
  - Dry skin [Unknown]
  - Fatigue [Unknown]
  - Tonsillitis [Unknown]
  - Decreased appetite [Unknown]
  - Dyspepsia [Unknown]
  - Myalgia [Unknown]
  - Bone pain [Unknown]
  - Chest pain [Unknown]
  - Anaemia [Unknown]
  - Weight decreased [Unknown]
  - Lymphadenopathy [Unknown]
  - Pain in extremity [Unknown]

NARRATIVE: CASE EVENT DATE: 20221011
